FAERS Safety Report 23138794 (Version 2)
Quarter: 2023Q4

REPORT INFORMATION
  Report Type: Other
  Country: US (occurrence: None)
  Receive Date: 20231102
  Receipt Date: 20231115
  Transmission Date: 20240110
  Serious: No
  Sender: FDA-Public Use
  Company Number: US-ROCHE-3450667

PATIENT
  Age: 42 Year
  Sex: Male

DRUGS (9)
  1. OCREVUS [Suspect]
     Active Substance: OCRELIZUMAB
     Indication: Primary progressive multiple sclerosis
     Dosage: THEN 600 MG EVERY 6 MONTHS. DATE OF TREATMENT: 05/MAY/2021, 30/NOV/2021 AND 03/JUN/2022, 01/SEP/2022
     Route: 042
  2. ALPRAZOLAM [Concomitant]
     Active Substance: ALPRAZOLAM
  3. AMPYRA [Concomitant]
     Active Substance: DALFAMPRIDINE
  4. DULOXETINE [Concomitant]
     Active Substance: DULOXETINE
  5. ESCITALOPRAM [Concomitant]
     Active Substance: ESCITALOPRAM OXALATE
  6. METHOCARBAMOL [Concomitant]
     Active Substance: METHOCARBAMOL
  7. PREGABALIN [Concomitant]
     Active Substance: PREGABALIN
  8. VARENICLINE [Concomitant]
     Active Substance: VARENICLINE
  9. ZOLPIDEM [Concomitant]
     Active Substance: ZOLPIDEM TARTRATE

REACTIONS (5)
  - Back disorder [Unknown]
  - Gastrooesophageal reflux disease [Unknown]
  - Seborrhoeic dermatitis [Unknown]
  - Tinea pedis [Unknown]
  - Onychomycosis [Unknown]
